FAERS Safety Report 7637441-5 (Version None)
Quarter: 2011Q3

REPORT INFORMATION
  Report Type: 
  Country: None (occurrence: None)
  Receive Date: 20110726
  Receipt Date: 20110714
  Transmission Date: 20111222
  Serious: Yes (Hospitalization)
  Sender: FDA-Public Use
  Company Number: PHHY2011TR63917

PATIENT
  Age: 8 Year
  Sex: Male

DRUGS (1)
  1. EXJADE [Suspect]
     Dosage: 500 MG, UNK
     Dates: start: 20090101

REACTIONS (2)
  - SPLENIC LESION [None]
  - POST PROCEDURAL COMPLICATION [None]
